FAERS Safety Report 6322921-5 (Version None)
Quarter: 2009Q3

REPORT INFORMATION
  Report Type: 
  Country: None (occurrence: None)
  Receive Date: 20090818
  Receipt Date: 20090129
  Transmission Date: 20100115
  Serious: Yes (Hospitalization)
  Sender: FDA-Public Use
  Company Number: MEDI-0007773

PATIENT
  Age: 5 Month
  Sex: Male
  Weight: 6.3504 kg

DRUGS (4)
  1. SYNAGIS [Suspect]
     Indication: PREMATURE BABY
     Dosage: 85 MG, 1 IN 28 D, INTRAMUSCULAR
     Route: 030
     Dates: start: 20081120, end: 20081120
  2. SYNAGIS [Suspect]
     Dosage: 91 MG, 1 IN 28 D, INTRAMUSCULAR
     Route: 030
     Dates: start: 20081216
  3. SYNAGIS [Suspect]
     Dosage: 97 MG, 1 IN 28 D, INTRAMUSCULAR
     Route: 030
     Dates: start: 20090115
  4. PREVACID [Concomitant]

REACTIONS (2)
  - RESPIRATORY SYNCYTIAL VIRUS INFECTION [None]
  - WHEEZING [None]
